FAERS Safety Report 8568768-0 (Version None)
Quarter: 2012Q3

REPORT INFORMATION
  Report Type: 
  Country: None (occurrence: None)
  Receive Date: 20120803
  Receipt Date: 20120409
  Transmission Date: 20120928
  Serious: No
  Sender: FDA-Public Use
  Company Number: US-ABBOTT-12P-163-0923110-00

PATIENT
  Sex: Female
  Weight: 78.996 kg

DRUGS (7)
  1. CALCIUM PLUS VIT D [Concomitant]
     Indication: PRODUCT USED FOR UNKNOWN INDICATION
  2. ADVIR [Concomitant]
     Indication: ASTHMA
  3. NIASPAN [Suspect]
     Indication: BLOOD CHOLESTEROL
     Dates: start: 20120407
  4. CALCIUM MAGNESIUM [Concomitant]
     Indication: PRODUCT USED FOR UNKNOWN INDICATION
  5. CALCIUM [Concomitant]
     Indication: PRODUCT USED FOR UNKNOWN INDICATION
  6. NIASPAN [Suspect]
  7. NIASPAN [Suspect]

REACTIONS (2)
  - RASH [None]
  - PRURITUS [None]
